FAERS Safety Report 4809683-5 (Version None)
Quarter: 2005Q4

REPORT INFORMATION
  Report Type: 
  Country: None (occurrence: None)
  Receive Date: 20051021
  Receipt Date: 20031124
  Transmission Date: 20060501
  Serious: No
  Sender: FDA-Public Use
  Company Number: USA031253640

PATIENT
  Sex: Male

DRUGS (2)
  1. ZYPREXA [Suspect]
     Indication: PSYCHOTIC DISORDER
  2. DEPAKOTE [Concomitant]

REACTIONS (1)
  - LEUKOPENIA [None]
